FAERS Safety Report 6260735-5 (Version None)
Quarter: 2009Q3

REPORT INFORMATION
  Report Type: 
  Country: None (occurrence: None)
  Receive Date: 20090708
  Receipt Date: 20090701
  Transmission Date: 20100115
  Serious: Yes (Other)
  Sender: FDA-Public Use
  Company Number: BR-MERCK-0906BRA00035

PATIENT
  Age: 18 Year
  Sex: Female

DRUGS (8)
  1. SINGULAIR [Suspect]
     Indication: HOUSE DUST ALLERGY
     Route: 048
     Dates: start: 20090603, end: 20090613
  2. HORMONAL CONTRACEPTIVES (UNSPECIFIED) [Concomitant]
     Indication: CONTRACEPTION
     Route: 065
     Dates: start: 20090101
  3. FEXOFENADINE HYDROCHLORIDE [Concomitant]
     Route: 065
  4. FLUTICASONE PROPIONATE [Concomitant]
     Route: 065
  5. FLUTICASONE PROPIONATE AND SALMETEROL XINAFOATE [Concomitant]
     Route: 065
  6. ALBUTEROL SULFATE [Concomitant]
     Route: 048
  7. PREDNISONE [Concomitant]
     Route: 048
     Dates: start: 20090603, end: 20090609
  8. CLARITHROMYCIN [Concomitant]
     Route: 048
     Dates: start: 20090617, end: 20090623

REACTIONS (3)
  - ABNORMAL BEHAVIOUR [None]
  - ANXIETY [None]
  - SUICIDE ATTEMPT [None]
